FAERS Safety Report 4677420-3 (Version None)
Quarter: 2005Q2

REPORT INFORMATION
  Report Type: 
  Country: None (occurrence: None)
  Receive Date: 20050531
  Receipt Date: 20050519
  Transmission Date: 20051028
  Serious: Yes (Other)
  Sender: FDA-Public Use
  Company Number: PHBS2005PK07169

PATIENT
  Age: 26 Year
  Sex: Female

DRUGS (1)
  1. DICLOFENAC SODIUM [Suspect]
     Indication: PYREXIA

REACTIONS (12)
  - ANAEMIA [None]
  - EMBOLIA CUTIS MEDICAMENTOSA [None]
  - HAEMOGLOBIN DECREASED [None]
  - HEADACHE [None]
  - INJECTION SITE ERYTHEMA [None]
  - INJECTION SITE NECROSIS [None]
  - INJECTION SITE SWELLING [None]
  - INJECTION SITE ULCER [None]
  - LEUKOCYTOSIS [None]
  - PYREXIA [None]
  - SCAR [None]
  - SKIN ULCER HAEMORRHAGE [None]
